FAERS Safety Report 9275195 (Version 1)
Quarter: 2013Q2

REPORT INFORMATION
  Report Type: Spontaneous
  Country: US (occurrence: None)
  Receive Date: 20130501
  Receipt Date: 20130501
  Transmission Date: 20140414
  Serious: Yes (Hospitalization)
  Sender: FDA-Public Use
  Company Number: None

PATIENT
  Age: 36 Year
  Sex: Male
  Weight: 128.82 kg

DRUGS (3)
  1. ZIPRASIDONE [Suspect]
     Indication: BIPOLAR DISORDER
  2. ZIPRASIDONE [Suspect]
     Indication: AGITATION
  3. HALOPERIDOL [Suspect]
     Indication: AGITATION

REACTIONS (5)
  - Joint injury [None]
  - Lethargy [None]
  - Salivary hypersecretion [None]
  - Fall [None]
  - Hypothermia [None]
